FAERS Safety Report 7595383-8 (Version None)
Quarter: 2011Q3

REPORT INFORMATION
  Report Type: 
  Country: None (occurrence: None)
  Receive Date: 20110707
  Receipt Date: 20110624
  Transmission Date: 20111222
  Serious: Yes (Other)
  Sender: FDA-Public Use
  Company Number: BR-JNJFOC-20110510457

PATIENT
  Sex: Male
  Weight: 20 kg

DRUGS (8)
  1. RANITIDINE [Concomitant]
     Indication: STOMATITIS
     Route: 048
     Dates: start: 20110401, end: 20110501
  2. HIXIZINE [Concomitant]
     Indication: ANTIALLERGIC THERAPY
     Dosage: 20 DROPS
     Route: 048
     Dates: start: 20110501
  3. DEXCHLORPHENIRAMINE MALEATE [Concomitant]
     Indication: HYPERSENSITIVITY
     Route: 048
     Dates: start: 20110501, end: 20110501
  4. MYLANTA PLUS [Suspect]
     Indication: ABDOMINAL DISCOMFORT
     Dosage: 5-10 ML
     Route: 048
     Dates: start: 20110510, end: 20110512
  5. REVITA JR (VITAMIN SUPPLEMENT) [Concomitant]
     Route: 048
  6. FLAGASS [Concomitant]
     Indication: FLATULENCE
     Route: 048
     Dates: start: 20110501, end: 20110501
  7. MYLANTA PLUS [Suspect]
     Indication: STOMATITIS
     Dosage: 5-10 ML
     Route: 048
     Dates: start: 20110510, end: 20110512
  8. NISTATINA [Concomitant]
     Indication: RASH
     Dosage: 20 DROPS
     Route: 061
     Dates: start: 20110501

REACTIONS (5)
  - ORTHOSTATIC HYPOTENSION [None]
  - WRONG DRUG ADMINISTERED [None]
  - HYPERSENSITIVITY [None]
  - URINARY TRACT INFECTION [None]
  - SOMNOLENCE [None]
